FAERS Safety Report 17119517 (Version 1)
Quarter: 2019Q4

REPORT INFORMATION
  Report Type: Spontaneous
  Country: DE (occurrence: DE)
  Receive Date: 20191206
  Receipt Date: 20191206
  Transmission Date: 20200122
  Serious: Yes (Other)
  Sender: FDA-Public Use
  Company Number: DE-AUROBINDO-AUR-APL-2019-103317

PATIENT
  Age: 86 Year
  Sex: Male
  Weight: 99 kg

DRUGS (3)
  1. PIPERACILLIN AND TAZOBACTAM [Suspect]
     Active Substance: PIPERACILLIN SODIUM\TAZOBACTAM SODIUM
     Indication: PRODUCT USED FOR UNKNOWN INDICATION
     Dosage: 18 GRAM, ONCE A DAY (4.5 G, 4X/DAY)
     Route: 065
  2. VANCOMYCIN [Suspect]
     Active Substance: VANCOMYCIN
     Indication: PRODUCT USED FOR UNKNOWN INDICATION
     Dosage: UNK (DOSE ADJUSTED BASED ON TROUGH-LEVEL)
     Route: 065
  3. VANCOMYCIN [Suspect]
     Active Substance: VANCOMYCIN
     Dosage: 2 GRAM, ONCE A DAY (INITIALLY)
     Route: 065

REACTIONS (3)
  - Renal injury [Unknown]
  - Thrombocytopenia [Unknown]
  - Condition aggravated [Unknown]
